FAERS Safety Report 8310065-2 (Version None)
Quarter: 2012Q2

REPORT INFORMATION
  Report Type: 
  Country: None (occurrence: None)
  Receive Date: 20120423
  Receipt Date: 20120412
  Transmission Date: 20120825
  Serious: Yes (Death)
  Sender: FDA-Public Use
  Company Number: UTC-017684

PATIENT
  Age: 68 Year
  Sex: Male
  Weight: 63.64 kg

DRUGS (3)
  1. COUMADIN [Concomitant]
  2. TYVASO [Suspect]
     Indication: COR PULMONALE CHRONIC
     Dosage: 18-54 MICROGRAMS, INHALATION
     Route: 055
     Dates: start: 20120109
  3. REVATIO [Concomitant]

REACTIONS (1)
  - DEATH [None]
